FAERS Safety Report 6919065-8 (Version None)
Quarter: 2010Q3

REPORT INFORMATION
  Report Type: 
  Country: None (occurrence: None)
  Receive Date: 20100811
  Receipt Date: 20100729
  Transmission Date: 20110219
  Serious: Yes (Other)
  Sender: FDA-Public Use
  Company Number: PHHY2010MX50159

PATIENT
  Sex: Female

DRUGS (5)
  1. DIOVAN HCT [Suspect]
     Indication: HYPERTENSION
     Dosage: 1 TABLET (80/12.5 MG) PER DAY
     Dates: start: 20071001
  2. FOLIC ACID [Concomitant]
     Dosage: 1 TABLET PER DAY
     Dates: start: 20100301
  3. ASPIRIN [Concomitant]
     Indication: HYPERTENSION
     Dosage: 1 TABLET PER DAY
  4. ASPIRIN [Concomitant]
     Indication: ARTERIAL DISORDER
  5. DICLOFENAC [Concomitant]
     Indication: BONE PAIN

REACTIONS (2)
  - TRANSIENT ISCHAEMIC ATTACK [None]
  - TREATMENT NONCOMPLIANCE [None]
